FAERS Safety Report 11575657 (Version 1)
Quarter: 2015Q3

REPORT INFORMATION
  Report Type: Spontaneous
  Country: US (occurrence: US)
  Receive Date: 20150916
  Receipt Date: 20150916
  Transmission Date: 20151125
  Serious: No
  Sender: FDA-Public Use
  Company Number: US-ELI_LILLY_AND_COMPANY-US200908001578

PATIENT
  Sex: Female

DRUGS (1)
  1. FORTEO [Suspect]
     Active Substance: TERIPARATIDE
     Dates: start: 200901

REACTIONS (16)
  - Myalgia [Unknown]
  - Feeling hot [Unknown]
  - Insomnia [Unknown]
  - Injection site erythema [Unknown]
  - Vascular pain [Unknown]
  - Burning sensation [Unknown]
  - Joint swelling [Recovered/Resolved]
  - Bone pain [Unknown]
  - Muscular weakness [Unknown]
  - Restlessness [Unknown]
  - Arthralgia [Unknown]
  - Breast enlargement [Unknown]
  - Pain [Not Recovered/Not Resolved]
  - Hyperhidrosis [Unknown]
  - Arthralgia [Recovered/Resolved]
  - Apathy [Unknown]
